FAERS Safety Report 6131521-1 (Version None)
Quarter: 2009Q1

REPORT INFORMATION
  Report Type: 
  Country: None (occurrence: None)
  Receive Date: 20090325
  Receipt Date: 20080916
  Transmission Date: 20090719
  Serious: Yes (Other)
  Sender: FDA-Public Use
  Company Number: US-BRISTOL-MYERS SQUIBB COMPANY-14337026

PATIENT
  Sex: Female
  Weight: 76 kg

DRUGS (4)
  1. ERBITUX [Suspect]
     Indication: SQUAMOUS CELL CARCINOMA
     Route: 042
     Dates: start: 20080909, end: 20080909
  2. DECADRON [Concomitant]
     Indication: PREMEDICATION
     Route: 042
  3. CIMETIDINE HCL [Concomitant]
     Indication: PREMEDICATION
     Route: 042
  4. BENADRYL [Concomitant]
     Indication: PREMEDICATION
     Route: 042

REACTIONS (3)
  - SPEECH DISORDER [None]
  - SWOLLEN TONGUE [None]
  - URTICARIA [None]
